FAERS Safety Report 20526773 (Version 1)
Quarter: 2022Q1

REPORT INFORMATION
  Report Type: Spontaneous
  Country: US (occurrence: None)
  Receive Date: 20220227
  Receipt Date: 20220227
  Transmission Date: 20220424
  Serious: Yes (Disabling, Other)
  Sender: FDA-Public Use
  Company Number: None

PATIENT
  Age: 15 Month
  Sex: Male
  Weight: 9 kg

DRUGS (2)
  1. HYDROCORTISONE [Suspect]
     Active Substance: HYDROCORTISONE
     Indication: Dermatitis atopic
     Dosage: FREQUENCY :  APPLY TWICE A DAY;?
     Route: 061
     Dates: start: 20210413, end: 20211226
  2. TRIAMCINOLONE ACETONIDE [Suspect]
     Active Substance: TRIAMCINOLONE ACETONIDE
     Indication: Dermatitis atopic
     Dosage: FREQUENCY : AS NEEDED;?
     Route: 061
     Dates: start: 20210409, end: 20210414

REACTIONS (1)
  - Steroid withdrawal syndrome [None]

NARRATIVE: CASE EVENT DATE: 20211226
